FAERS Safety Report 21045510 (Version 2)
Quarter: 2023Q2

REPORT INFORMATION
  Report Type: Report from Study
  Country: US (occurrence: US)
  Receive Date: 20220706
  Receipt Date: 20230523
  Transmission Date: 20230722
  Serious: Yes (Death)
  Sender: FDA-Public Use
  Company Number: US-ABBVIE-22K-163-4457344-00

PATIENT
  Age: 78 Year
  Sex: Female

DRUGS (1)
  1. IMBRUVICA [Suspect]
     Active Substance: IBRUTINIB
     Indication: Chronic lymphocytic leukaemia
     Route: 048
     Dates: start: 202106, end: 20220630

REACTIONS (1)
  - Death [Fatal]

NARRATIVE: CASE EVENT DATE: 20220630
